FAERS Safety Report 6490951-9 (Version None)
Quarter: 2009Q4

REPORT INFORMATION
  Report Type: 
  Country: None (occurrence: None)
  Receive Date: 20091211
  Receipt Date: 20091203
  Transmission Date: 20100525
  Serious: Yes (Death)
  Sender: FDA-Public Use
  Company Number: GXKR2009CA13106

PATIENT
  Age: 75 Year
  Sex: Female

DRUGS (9)
  1. ALENDRONIC ACID (NGX) [Suspect]
     Dosage: UNK
     Route: 065
  2. METFORMIN (NGX) [Suspect]
     Dosage: 1000 MG, DAILY
     Route: 065
  3. COMBIVENT                               /GFR/ [Suspect]
  4. LASIX [Suspect]
  5. LIPITOR [Suspect]
  6. LOSEC                                   /CAN/ [Suspect]
  7. NITRAZADON [Suspect]
     Dosage: UNK MG, UNK
  8. PLAQUENIL [Suspect]
     Dosage: 300 MG, UNK
  9. PREDNISONE [Suspect]
     Dosage: 5 MG

REACTIONS (1)
  - CHEST DISCOMFORT [None]
